FAERS Safety Report 8041985-4 (Version None)
Quarter: 2011Q4

REPORT INFORMATION
  Report Type: 
  Country: None (occurrence: None)
  Receive Date: 20111205
  Receipt Date: 20110829
  Transmission Date: 20120403
  Serious: No
  Sender: FDA-Public Use
  Company Number: 163-22393-11090153

PATIENT
  Sex: Female

DRUGS (1)
  1. ISTODAX [Suspect]
     Indication: PRODUCT USED FOR UNKNOWN INDICATION
     Dates: start: 20110824

REACTIONS (4)
  - NAUSEA [None]
  - PYREXIA [None]
  - DECREASED APPETITE [None]
  - WEIGHT DECREASED [None]
